FAERS Safety Report 12557683 (Version 1)
Quarter: 2016Q3

REPORT INFORMATION
  Report Type: Spontaneous
  Country: FR (occurrence: FR)
  Receive Date: 20160714
  Receipt Date: 20160714
  Transmission Date: 20161109
  Serious: Yes (Death, Hospitalization, Other)
  Sender: FDA-Public Use
  Company Number: FR-TEVA-674543ISR

PATIENT
  Age: 78 Year
  Sex: Female

DRUGS (5)
  1. VOLTARENE [Suspect]
     Active Substance: DICLOFENAC SODIUM
     Indication: GAIT DISTURBANCE
     Route: 048
     Dates: start: 20160531, end: 201606
  2. PIASCLEDINE [Suspect]
     Active Substance: AVOCADO OIL\SOYBEAN OIL
     Indication: GAIT DISTURBANCE
     Dosage: 300MG
     Route: 048
     Dates: end: 20160602
  3. PROPRANOLOL [Suspect]
     Active Substance: PROPRANOLOL\PROPRANOLOL HYDROCHLORIDE
     Indication: GASTROOESOPHAGEAL VARICEAL HAEMORRHAGE PROPHYLAXIS
     Route: 048
     Dates: end: 20160602
  4. PARACETAMOL [Suspect]
     Active Substance: ACETAMINOPHEN
     Indication: GAIT DISTURBANCE
     Route: 048
     Dates: end: 20160602
  5. SPIRONOLACTONE. [Suspect]
     Active Substance: SPIRONOLACTONE
     Indication: ASCITES
     Route: 048
     Dates: end: 20160602

REACTIONS (9)
  - Staphylococcal sepsis [Fatal]
  - Urosepsis [Fatal]
  - Subdural empyema [Unknown]
  - Extradural abscess [Unknown]
  - Sepsis [Unknown]
  - Endocarditis [Unknown]
  - Urinary tract infection bacterial [Unknown]
  - Escherichia infection [Unknown]
  - Bone abscess [Unknown]

NARRATIVE: CASE EVENT DATE: 20160602
